FAERS Safety Report 5273352-0 (Version None)
Quarter: 2007Q1

REPORT INFORMATION
  Report Type: 
  Country: None (occurrence: None)
  Receive Date: 20070319
  Receipt Date: 20070309
  Transmission Date: 20070707
  Serious: Yes (Other)
  Sender: FDA-Public Use
  Company Number: 238207

PATIENT
  Age: 75 Year
  Sex: Male

DRUGS (1)
  1. MABTHERA (RITUXIMAB) CONC FOR SOLUTION FOR INFUSION [Suspect]
     Indication: RHEUMATOID ARTHRITIS
     Dosage: 1 G
     Dates: start: 20061130

REACTIONS (4)
  - B-LYMPHOCYTE COUNT DECREASED [None]
  - COMA [None]
  - DYSPNOEA [None]
  - T-LYMPHOCYTE COUNT DECREASED [None]
